FAERS Safety Report 7463447-5 (Version None)
Quarter: 2011Q2

REPORT INFORMATION
  Report Type: 
  Country: None (occurrence: None)
  Receive Date: 20110506
  Receipt Date: 20110427
  Transmission Date: 20111010
  Serious: Yes (Hospitalization)
  Sender: FDA-Public Use
  Company Number: B0717287A

PATIENT
  Sex: Male

DRUGS (5)
  1. TRUVADA [Suspect]
     Indication: HIV INFECTION
     Dosage: 445MG PER DAY
     Route: 048
     Dates: start: 20090401, end: 20101226
  2. SELZENTRY [Suspect]
     Indication: HIV INFECTION
     Dosage: 600MG PER DAY
     Route: 065
     Dates: start: 20090401, end: 20101226
  3. FLUOXETINE [Concomitant]
     Indication: DEPRESSION
  4. CHAMPIONYL [Concomitant]
     Indication: DEPRESSION
  5. ISENTRESS [Suspect]
     Indication: HIV INFECTION
     Dosage: 800MG PER DAY
     Route: 048
     Dates: start: 20090401, end: 20101226

REACTIONS (6)
  - PYREXIA [None]
  - MYOGLOBIN URINE PRESENT [None]
  - MYOGLOBIN BLOOD INCREASED [None]
  - PETIT MAL EPILEPSY [None]
  - MUSCLE CONTRACTURE [None]
  - ALANINE AMINOTRANSFERASE INCREASED [None]
